FAERS Safety Report 5553545-5 (Version None)
Quarter: 2007Q4

REPORT INFORMATION
  Report Type: 
  Country: None (occurrence: None)
  Receive Date: 20071213
  Receipt Date: 20071205
  Transmission Date: 20080405
  Serious: Yes (Hospitalization, Congenital Anomaly)
  Sender: FDA-Public Use
  Company Number: CA-JNJFOC-20071201790

PATIENT
  Sex: Male
  Weight: 3.4 kg

DRUGS (3)
  1. ORTHO EVRA [Suspect]
     Indication: DRUG EXPOSURE DURING PREGNANCY
     Dates: end: 20070305
  2. EFFEXOR [Suspect]
     Indication: DRUG EXPOSURE DURING PREGNANCY
     Dates: end: 20070305
  3. DICLECTIN [Concomitant]
     Indication: DRUG EXPOSURE DURING PREGNANCY
     Route: 064
     Dates: start: 20070327, end: 20071111

REACTIONS (2)
  - DRUG EXPOSURE DURING PREGNANCY [None]
  - VENTRICULAR HYPOPLASIA [None]
